FAERS Safety Report 6132755-2 (Version None)
Quarter: 2009Q1

REPORT INFORMATION
  Report Type: 
  Country: None (occurrence: None)
  Receive Date: 20090326
  Receipt Date: 20090316
  Transmission Date: 20090719
  Serious: Yes (Hospitalization)
  Sender: FDA-Public Use
  Company Number: US-WYE-H08614509

PATIENT
  Sex: Female

DRUGS (6)
  1. PRISTIQ [Suspect]
     Indication: DEPRESSION
     Route: 048
     Dates: start: 20090123, end: 20090312
  2. PRISTIQ [Suspect]
     Indication: PAIN
  3. IMIPRAMINE [Suspect]
     Route: 048
     Dates: end: 20090312
  4. WELLBUTRIN [Suspect]
     Route: 048
     Dates: end: 20090312
  5. LAMICTAL [Suspect]
     Dosage: 100 MG IN THE AM, 50 MG IN THE PM
     Route: 065
     Dates: end: 20090312
  6. XANAX [Suspect]
     Route: 065
     Dates: end: 20090312

REACTIONS (4)
  - CONVERSION DISORDER [None]
  - COUGH [None]
  - PNEUMONIA [None]
  - SOMATOFORM DISORDER [None]
